FAERS Safety Report 13674800 (Version 1)
Quarter: 2017Q2

REPORT INFORMATION
  Report Type: Report from Study
  Country: US (occurrence: US)
  Receive Date: 20170621
  Receipt Date: 20170621
  Transmission Date: 20170830
  Serious: Yes (Other)
  Sender: FDA-Public Use
  Company Number: US-INGENUS PHARMACEUTICALS NJ, LLC-ING201706-000299

PATIENT
  Age: 17 Year
  Sex: Female

DRUGS (2)
  1. WARFARIN [Suspect]
     Active Substance: WARFARIN
     Indication: CORONARY ARTERY ANEURYSM
  2. CARISOPRODOL AND ASPIRIN [Suspect]
     Active Substance: ASPIRIN\CARISOPRODOL
     Indication: CORONARY ARTERY ANEURYSM

REACTIONS (6)
  - Anaemia [Unknown]
  - Product use in unapproved indication [Unknown]
  - Menometrorrhagia [Unknown]
  - Pericardial haemorrhage [Unknown]
  - Drug effect incomplete [Unknown]
  - Epistaxis [Unknown]
